FAERS Safety Report 4735901-8 (Version None)
Quarter: 2005Q3

REPORT INFORMATION
  Report Type: 
  Country: None (occurrence: None)
  Receive Date: 20050721
  Receipt Date: 20050421
  Transmission Date: 20060218
  Serious: No
  Sender: FDA-Public Use
  Company Number: 2005SP000292

PATIENT
  Age: 54 Year
  Sex: Male
  Weight: 61.2356 kg

DRUGS (4)
  1. LUNESTA [Suspect]
     Indication: INSOMNIA
     Dosage: 1 MG;HS;ORAL; 2 MG;X1;ORAL;  1 MG;X1;ORAL
     Route: 048
     Dates: start: 20050422, end: 20050422
  2. LUNESTA [Suspect]
     Indication: INSOMNIA
     Dosage: 1 MG;HS;ORAL; 2 MG;X1;ORAL;  1 MG;X1;ORAL
     Route: 048
     Dates: start: 20050423, end: 20050423
  3. LUNESTA [Suspect]
     Indication: INSOMNIA
     Dosage: 1 MG;HS;ORAL; 2 MG;X1;ORAL;  1 MG;X1;ORAL
     Route: 048
     Dates: start: 20050424, end: 20050424
  4. ATIVAN [Concomitant]

REACTIONS (2)
  - DRUG INEFFECTIVE [None]
  - MIDDLE INSOMNIA [None]
